FAERS Safety Report 18490306 (Version 1)
Quarter: 2020Q4

REPORT INFORMATION
  Report Type: Spontaneous
  Country: US (occurrence: US)
  Receive Date: 20201111
  Receipt Date: 20201111
  Transmission Date: 20210114
  Serious: Yes (Death, Hospitalization, Other)
  Sender: FDA-Public Use
  Company Number: US-FRESENIUS KABI-FK202011819

PATIENT
  Age: 44 Year
  Sex: Female

DRUGS (2)
  1. CARBOPLATIN (MANUFACTURER UNKNOWN) [Suspect]
     Active Substance: CARBOPLATIN
     Indication: ADENOSQUAMOUS CARCINOMA OF THE CERVIX
     Route: 065
  2. CARBOPLATIN (MANUFACTURER UNKNOWN) [Suspect]
     Active Substance: CARBOPLATIN
     Dosage: AUC 2
     Route: 065

REACTIONS (3)
  - Pulmonary embolism [Unknown]
  - Hepatitis B reactivation [Fatal]
  - Deep vein thrombosis [Unknown]
